FAERS Safety Report 20596904 (Version 1)
Quarter: 2022Q1

REPORT INFORMATION
  Report Type: Spontaneous
  Country: US (occurrence: US)
  Receive Date: 20220315
  Receipt Date: 20220315
  Transmission Date: 20220423
  Serious: No
  Sender: FDA-Public Use
  Company Number: US-PERRIGO-21US008551

PATIENT
  Sex: Male

DRUGS (2)
  1. NICOTINE POLACRILEX [Suspect]
     Active Substance: NICOTINE
     Indication: Smoking cessation therapy
     Dosage: 4 MG, APPROX. 2 TO 3 DAILY
     Route: 002
     Dates: start: 202009, end: 202103
  2. NICOTINE POLACRILEX [Suspect]
     Active Substance: NICOTINE
     Dosage: 4 MG, APPROX. 20 OR MOR DAILY
     Route: 002
     Dates: start: 202103

REACTIONS (2)
  - Dysarthria [Unknown]
  - Overdose [Not Recovered/Not Resolved]

NARRATIVE: CASE EVENT DATE: 20210101
